FAERS Safety Report 4551970-2 (Version None)
Quarter: 2005Q1

REPORT INFORMATION
  Report Type: 
  Country: None (occurrence: None)
  Receive Date: 20050112
  Receipt Date: 20041231
  Transmission Date: 20050727
  Serious: Yes (Disabling)
  Sender: FDA-Public Use
  Company Number: HQWYE045017DEC04

PATIENT
  Age: 82 Year
  Sex: Male

DRUGS (13)
  1. ANCARON (AMIODARONE, TABLET) [Suspect]
     Indication: VENTRICULAR TACHYCARDIA
     Dosage: 100 MG 2X PER 1 DAY ORAL
     Route: 048
     Dates: start: 20041026, end: 20041206
  2. LASIX [Concomitant]
  3. TICLOPIDINE HCL [Concomitant]
  4. BUFFERIN (ACETYLSALICYLIC ACID/ALUMINIUM GLYCINATE/MAGNSIUM CARBONATE) [Concomitant]
  5. BAYASPIRINA (ACETYLSALICYLIC ACID) [Concomitant]
  6. UBRETID (DISTIGMINE BROMIDE) [Concomitant]
  7. DOXAZOSIN MESYLATE [Concomitant]
  8. ALDACTONE [Concomitant]
  9. FAMOTIDINE [Concomitant]
  10. TINELAC (SENNOSIDE A+B) [Concomitant]
  11. NITRODERM [Concomitant]
  12. AMINO ACIDS (AMINO ACIDS) [Concomitant]
  13. ELECTROLYTE SOLUTIONS (ELECTROLYTE SOLUTIONS) [Concomitant]

REACTIONS (4)
  - ATRIAL FLUTTER [None]
  - CARDIAC FAILURE CONGESTIVE [None]
  - CHEST DISCOMFORT [None]
  - RENAL FAILURE [None]
